FAERS Safety Report 8981347 (Version 1)
Quarter: 2012Q4

REPORT INFORMATION
  Report Type: Report from Study
  Country: FR (occurrence: FR)
  Receive Date: 20121221
  Receipt Date: 20121221
  Transmission Date: 20130627
  Serious: Yes (Death)
  Sender: FDA-Public Use
  Company Number: FR-SANOFI-AVENTIS-2012SA093124

PATIENT

DRUGS (5)
  1. FLUOROURACIL [Suspect]
     Indication: COLON CANCER
     Dosage: drug was administered on day 1 and 2.
     Route: 065
  2. FLUOROURACIL [Suspect]
     Indication: COLON CANCER
     Dosage: drug was administered on day 1and 2, 22-h continous infusion
     Route: 065
  3. OXALIPLATIN [Suspect]
     Indication: COLON CANCER
     Dosage: drug was administered on day 1
     Route: 042
  4. LEUCOVORIN [Suspect]
     Indication: COLON CANCER
     Dosage: intravenously, drug was administered on day 1.
     Route: 042
  5. LEUCOVORIN [Suspect]
     Indication: COLON CANCER
     Dosage: drug was administered on day 2.
     Route: 042

REACTIONS (1)
  - Myocardial ischaemia [Fatal]
